FAERS Safety Report 6489736-9 (Version None)
Quarter: 2009Q4

REPORT INFORMATION
  Report Type: 
  Country: None (occurrence: None)
  Receive Date: 20091210
  Receipt Date: 20091204
  Transmission Date: 20100525
  Serious: Yes (Hospitalization)
  Sender: FDA-Public Use
  Company Number: JP-B.I. PHARMACEUTICALS,INC./RIDGEFIELD-2009-BP-13954NB

PATIENT
  Age: 79 Year
  Sex: Female

DRUGS (5)
  1. MOBIC [Suspect]
     Indication: NECK PAIN
     Route: 048
     Dates: end: 20081011
  2. CARBAMAZEPINE [Concomitant]
  3. LOFEPRAMINE HYDROCHLORIDE [Concomitant]
  4. SULPIRIDE [Concomitant]
  5. ZOPICLONE [Concomitant]

REACTIONS (2)
  - DRUG RASH WITH EOSINOPHILIA AND SYSTEMIC SYMPTOMS [None]
  - RENAL FAILURE ACUTE [None]
